APPROVED DRUG PRODUCT: ILOSONE
Active Ingredient: ERYTHROMYCIN ESTOLATE
Strength: EQ 250MG BASE
Dosage Form/Route: CAPSULE;ORAL
Application: A061897 | Product #002
Applicant: ELI LILLY AND CO
Approved: Approved Prior to Jan 1, 1982 | RLD: No | RS: No | Type: DISCN